FAERS Safety Report 17018480 (Version 3)
Quarter: 2020Q1

REPORT INFORMATION
  Report Type: Report from Study
  Country: DE (occurrence: DE)
  Receive Date: 20191111
  Receipt Date: 20200103
  Transmission Date: 20200409
  Serious: Yes (Hospitalization, Other)
  Sender: FDA-Public Use
  Company Number: PHHY2019DE155384

PATIENT
  Age: 29 Year
  Sex: Female
  Weight: 89 kg

DRUGS (5)
  1. TOLPERISONE [Concomitant]
     Active Substance: TOLPERISONE
     Indication: BACK PAIN
     Dosage: 50 MG, 3 X 3
     Route: 048
     Dates: start: 201810, end: 201811
  2. PANTOPRAZOLE [Concomitant]
     Active Substance: PANTOPRAZOLE
     Indication: ABDOMINAL PAIN UPPER
     Dosage: 40 MG, QD
     Route: 048
     Dates: start: 201810, end: 201811
  3. IBUPROFEN. [Concomitant]
     Active Substance: IBUPROFEN
     Indication: BACK PAIN
     Dosage: 800 MG AS NEEDED
     Route: 048
     Dates: start: 201810, end: 201811
  4. NOVAMINSULFON [Concomitant]
     Active Substance: METAMIZOLE
     Indication: BACK PAIN
     Dosage: 500 MG, AS NEEDED
     Route: 048
  5. GILENYA [Suspect]
     Active Substance: FINGOLIMOD HYDROCHLORIDE
     Indication: MULTIPLE SCLEROSIS
     Dosage: 0.5 MG, QD
     Route: 048
     Dates: start: 201709, end: 20181211

REACTIONS (5)
  - Kidney congestion [Recovered/Resolved]
  - Pelvi-ureteric obstruction [Not Recovered/Not Resolved]
  - Infection [Unknown]
  - Renal disorder [Not Recovered/Not Resolved]
  - Flank pain [Unknown]

NARRATIVE: CASE EVENT DATE: 20190430
